FAERS Safety Report 23654011 (Version 1)
Quarter: 2024Q1

REPORT INFORMATION
  Report Type: Spontaneous
  Country: US (occurrence: US)
  Receive Date: 20240320
  Receipt Date: 20240320
  Transmission Date: 20240410
  Serious: Yes (Other)
  Sender: FDA-Public Use
  Company Number: US-BRAEBURN-US-BRA-24-000206

PATIENT
  Sex: Female

DRUGS (1)
  1. BRIXADI [Suspect]
     Active Substance: BUPRENORPHINE
     Indication: Product used for unknown indication
     Dosage: 128 MILLIGRAM, MONTHLY
     Route: 065

REACTIONS (3)
  - Dependence [Unknown]
  - Drug dependence [Unknown]
  - Anxiety [Unknown]
